FAERS Safety Report 11503094 (Version 1)
Quarter: 2015Q3

REPORT INFORMATION
  Report Type: Spontaneous
  Country: US (occurrence: US)
  Receive Date: 20150914
  Receipt Date: 20150914
  Transmission Date: 20151125
  Serious: Yes (Other)
  Sender: FDA-Public Use
  Company Number: US-ASTELLAS-2015US030511

PATIENT
  Sex: Male
  Weight: 54.5 kg

DRUGS (43)
  1. MEMANTINE. [Concomitant]
     Active Substance: MEMANTINE
     Indication: PRODUCT USED FOR UNKNOWN INDICATION
     Route: 048
  2. GABAPENTIN. [Concomitant]
     Active Substance: GABAPENTIN
     Indication: PRODUCT USED FOR UNKNOWN INDICATION
     Route: 065
  3. PREDNISONE. [Concomitant]
     Active Substance: PREDNISONE
     Indication: PRODUCT USED FOR UNKNOWN INDICATION
     Route: 048
  4. PEPCID                             /00305201/ [Concomitant]
     Active Substance: ALUMINUM HYDROXIDE\MAGNESIUM CARBONATE
     Indication: PRODUCT USED FOR UNKNOWN INDICATION
     Dosage: 20 MG, ONCE DAILY AT BEDTIME
     Route: 048
  5. LUPRON [Concomitant]
     Active Substance: LEUPROLIDE ACETATE
     Indication: PRODUCT USED FOR UNKNOWN INDICATION
     Dosage: UNK UNK, UNKNOWN FREQ.
     Route: 065
  6. JEVTANA [Concomitant]
     Active Substance: CABAZITAXEL
     Indication: PRODUCT USED FOR UNKNOWN INDICATION
     Dosage: UNK UNK, UNKNOWN FREQ.
     Route: 065
     Dates: start: 201505, end: 201507
  7. TAXOTERE [Concomitant]
     Active Substance: DOCETAXEL
     Dosage: 75 MG/M2, EVERY 03 WEEKS
     Route: 065
     Dates: start: 20140205
  8. TAXOTERE [Concomitant]
     Active Substance: DOCETAXEL
     Dosage: 75 MG/M2, EVERY 03 WEEKS
     Route: 065
     Dates: start: 20140414
  9. TAXOTERE [Concomitant]
     Active Substance: DOCETAXEL
     Dosage: 75 MG/M2, EVERY 03 WEEKS
     Route: 065
     Dates: start: 20140528
  10. TAXOTERE [Concomitant]
     Active Substance: DOCETAXEL
     Dosage: 75 MG/M2, EVERY 03 WEEKS
     Route: 065
     Dates: start: 20140825
  11. TAXOTERE [Concomitant]
     Active Substance: DOCETAXEL
     Dosage: 75 MG/M2, EVERY 03 WEEKS
     Route: 065
     Dates: start: 20141028
  12. XTANDI [Suspect]
     Active Substance: ENZALUTAMIDE
     Indication: PROSTATE CANCER
     Route: 048
     Dates: start: 20150206, end: 20150819
  13. DEXAMETHASONE. [Concomitant]
     Active Substance: DEXAMETHASONE
     Indication: PRODUCT USED FOR UNKNOWN INDICATION
     Route: 048
  14. DEXAMETHASONE. [Concomitant]
     Active Substance: DEXAMETHASONE
     Route: 048
  15. XGEVA [Concomitant]
     Active Substance: DENOSUMAB
     Indication: PRODUCT USED FOR UNKNOWN INDICATION
     Dosage: UNK, MONTHLY
     Route: 065
     Dates: start: 20150216
  16. DEXAMETHASONE. [Concomitant]
     Active Substance: DEXAMETHASONE
     Route: 048
  17. METHADONE [Concomitant]
     Active Substance: METHADONE HYDROCHLORIDE
     Indication: PAIN
     Dosage: 10 MG, EVERY 08 HOURS
     Route: 048
  18. NEULASTA [Concomitant]
     Active Substance: PEGFILGRASTIM
     Indication: PRODUCT USED FOR UNKNOWN INDICATION
     Dosage: UNK UNK, ONCE DAILY
     Route: 058
  19. ONDANSETRON [Concomitant]
     Active Substance: ONDANSETRON
     Indication: NAUSEA
     Route: 048
  20. TAXOTERE [Concomitant]
     Active Substance: DOCETAXEL
     Dosage: 75 MG/M2, EVERY 03 WEEKS
     Route: 065
     Dates: start: 20140319
  21. TAXOTERE [Concomitant]
     Active Substance: DOCETAXEL
     Dosage: 75 MG/M2, EVERY 03 WEEKS
     Route: 065
     Dates: start: 20140506
  22. TAXOTERE [Concomitant]
     Active Substance: DOCETAXEL
     Dosage: 75 MG/M2, EVERY 03 WEEKS
     Route: 065
     Dates: start: 20140915
  23. NICORETTE MINT                     /01033301/ [Concomitant]
     Indication: SMOKING CESSATION THERAPY
     Route: 048
  24. MIRTAZAPINE. [Concomitant]
     Active Substance: MIRTAZAPINE
     Indication: PRODUCT USED FOR UNKNOWN INDICATION
     Route: 048
  25. TAXOTERE [Concomitant]
     Active Substance: DOCETAXEL
     Dosage: 75 MG/M2, EVERY 03 WEEKS
     Route: 065
     Dates: start: 20141007
  26. TAXOTERE [Concomitant]
     Active Substance: DOCETAXEL
     Dosage: 75 MG/M2, EVERY 03 WEEKS
     Route: 065
     Dates: start: 20141209
  27. SULFAMETHOXAZOLE AND TRIMETHOPRIM [Concomitant]
     Active Substance: SULFAMETHOXAZOLE\TRIMETHOPRIM
     Indication: PRODUCT USED FOR UNKNOWN INDICATION
     Dosage: UNK UNK, ONCE DAILY
     Route: 048
  28. BUSPIRONE [Concomitant]
     Active Substance: BUSPIRONE HYDROCHLORIDE
     Indication: PRODUCT USED FOR UNKNOWN INDICATION
     Route: 048
  29. SENNA [Concomitant]
     Active Substance: SENNA LEAF\SENNOSIDES\SENNOSIDES A AND B
     Indication: PRODUCT USED FOR UNKNOWN INDICATION
     Route: 048
  30. ASTRAGALUS SPP. EXTRACT [Concomitant]
     Indication: BONE MARROW DISORDER
     Route: 048
  31. BACLOFEN. [Concomitant]
     Active Substance: BACLOFEN
     Indication: HICCUPS
     Dosage: 1-2 TABLET EVERY 8 HOURS, AS NEEDED
     Route: 065
  32. TAXOTERE [Concomitant]
     Active Substance: DOCETAXEL
     Dosage: 75 MG/M2, EVERY 03 WEEKS
     Route: 065
     Dates: start: 20140709
  33. TAXOTERE [Concomitant]
     Active Substance: DOCETAXEL
     Dosage: 75 MG/M2, EVERY 03 WEEKS
     Route: 065
     Dates: start: 20140730
  34. OXYCODONE [Concomitant]
     Active Substance: OXYCODONE
     Indication: PAIN
     Dosage: U1-2 TABLET ORALLY EVERY 04 HOURS, AS NEEDED
     Route: 065
  35. CALTRATE                           /00944201/ [Concomitant]
     Indication: PRODUCT USED FOR UNKNOWN INDICATION
     Dosage: UNK UNK, UNKNOWN FREQ.
     Route: 065
  36. MEGACE [Concomitant]
     Active Substance: MEGESTROL ACETATE
     Indication: APPETITE DISORDER
     Dosage: 0.2 ML, TWICE DAILY
     Route: 048
  37. MELATONIN [Concomitant]
     Active Substance: MELATONIN
     Indication: SLEEP DISORDER
     Route: 048
  38. TAXOTERE [Concomitant]
     Active Substance: DOCETAXEL
     Indication: PRODUCT USED FOR UNKNOWN INDICATION
     Dosage: 75 MG/M2, EVERY 03 WEEKS
     Route: 065
     Dates: start: 20140115
  39. TAXOTERE [Concomitant]
     Active Substance: DOCETAXEL
     Dosage: 75 MG/M2, EVERY 03 WEEKS
     Route: 065
     Dates: start: 20140226
  40. TAXOTERE [Concomitant]
     Active Substance: DOCETAXEL
     Dosage: 75 MG/M2, EVERY 03 WEEKS
     Route: 065
     Dates: start: 20140617
  41. TAXOTERE [Concomitant]
     Active Substance: DOCETAXEL
     Dosage: 75 MG/M2, EVERY 03 WEEKS
     Route: 065
     Dates: start: 20141114
  42. TAXOTERE [Concomitant]
     Active Substance: DOCETAXEL
     Dosage: 75 MG/M2, EVERY 03 WEEKS
     Route: 065
     Dates: start: 20150106
  43. ZYTIGA [Concomitant]
     Active Substance: ABIRATERONE ACETATE
     Indication: PRODUCT USED FOR UNKNOWN INDICATION
     Route: 048

REACTIONS (7)
  - Malignant neoplasm progression [Unknown]
  - Memory impairment [Unknown]
  - Cognitive disorder [Unknown]
  - Metastases to meninges [Unknown]
  - Gait disturbance [Unknown]
  - Seizure [Unknown]
  - Back pain [Unknown]
